FAERS Safety Report 4427472-0 (Version None)
Quarter: 2004Q3

REPORT INFORMATION
  Report Type: 
  Country: None (occurrence: None)
  Receive Date: 20040817
  Receipt Date: 20040802
  Transmission Date: 20050211
  Serious: Yes (Hospitalization)
  Sender: FDA-Public Use
  Company Number: FR-JNJFOC-20040602484

PATIENT
  Sex: Male
  Weight: 24 kg

DRUGS (3)
  1. EPITOMAX [Suspect]
     Indication: EPILEPSY
     Route: 049
  2. DEPAKINE [Concomitant]
     Route: 065
  3. RIVOTRIL [Concomitant]
     Route: 065

REACTIONS (2)
  - COMA [None]
  - OVERDOSE [None]
